FAERS Safety Report 4308308-5 (Version None)
Quarter: 2004Q1

REPORT INFORMATION
  Report Type: 
  Country: None (occurrence: None)
  Receive Date: 20040301
  Receipt Date: 20031204
  Transmission Date: 20041129
  Serious: No
  Sender: FDA-Public Use
  Company Number: US-BRISTOL-MYERS SQUIBB COMPANY-12450102

PATIENT
  Age: 82 Year
  Sex: Male
  Weight: 73 kg

DRUGS (7)
  1. GLUCOPHAGE [Suspect]
     Indication: BLOOD TRIGLYCERIDES INCREASED
     Dosage: DURATION OF THERAPY: 3-4 YEARS
     Route: 048
  2. POTASSIUM CHLORIDE [Concomitant]
  3. NEXIUM [Concomitant]
  4. LOPID [Concomitant]
  5. ATENOLOL [Concomitant]
  6. GLUCOSAMINE [Concomitant]
  7. CHLORTALIDONE [Concomitant]

REACTIONS (3)
  - FLATULENCE [None]
  - LOOSE STOOLS [None]
  - NAUSEA [None]
